FAERS Safety Report 8370505-X (Version None)
Quarter: 2012Q2

REPORT INFORMATION
  Report Type: 
  Country: None (occurrence: None)
  Receive Date: 20120518
  Receipt Date: 20120516
  Transmission Date: 20120825
  Serious: Yes (Other)
  Sender: FDA-Public Use
  Company Number: US-PFIZER INC-2012119139

PATIENT
  Sex: Male

DRUGS (1)
  1. LYRICA [Suspect]

REACTIONS (8)
  - OEDEMA PERIPHERAL [None]
  - DIZZINESS [None]
  - CONSTIPATION [None]
  - HYPOAESTHESIA [None]
  - DRY MOUTH [None]
  - ASTHENIA [None]
  - FATIGUE [None]
  - NERVE INJURY [None]
